FAERS Safety Report 7378916-6 (Version None)
Quarter: 2011Q1

REPORT INFORMATION
  Report Type: 
  Country: None (occurrence: None)
  Receive Date: 20110328
  Receipt Date: 20110319
  Transmission Date: 20110831
  Serious: Yes (Other)
  Sender: FDA-Public Use
  Company Number: US-ABBOTT-11P-163-0714064-00

PATIENT
  Age: 40 Year
  Sex: Male

DRUGS (3)
  1. TRUVADA [Concomitant]
     Indication: ANTIRETROVIRAL THERAPY
  2. ATAZANAVIR [Concomitant]
     Indication: ANTIRETROVIRAL THERAPY
  3. RITONAVIR [Suspect]
     Indication: ANTIRETROVIRAL THERAPY

REACTIONS (3)
  - RETINAL DEPOSITS [None]
  - RETINAL PIGMENT EPITHELIOPATHY [None]
  - BLINDNESS [None]
